FAERS Safety Report 5721705-6 (Version None)
Quarter: 2008Q2

REPORT INFORMATION
  Report Type: 
  Country: None (occurrence: None)
  Receive Date: 20080429
  Receipt Date: 20070424
  Transmission Date: 20081010
  Serious: No
  Sender: FDA-Public Use
  Company Number: US-ASTRAZENECA-2007UW08040

PATIENT
  Sex: Male

DRUGS (6)
  1. NEXIUM [Suspect]
     Indication: OESOPHAGITIS
     Dates: start: 20070328
  2. LOTREL [Concomitant]
  3. DIOVAN [Concomitant]
  4. FLOMAX [Concomitant]
  5. AVODART [Concomitant]
  6. INSULIN [Concomitant]

REACTIONS (1)
  - HYPOGLYCAEMIA [None]
